FAERS Safety Report 18742677 (Version 1)
Quarter: 2021Q1

REPORT INFORMATION
  Report Type: Spontaneous
  Country: US (occurrence: US)
  Receive Date: 20210114
  Receipt Date: 20210114
  Transmission Date: 20210419
  Serious: Yes (Other)
  Sender: FDA-Public Use
  Company Number: US-BAUSCH-BL-2021-000297

PATIENT
  Sex: Female

DRUGS (1)
  1. ALDARA [Suspect]
     Active Substance: IMIQUIMOD
     Indication: ACTINIC KERATOSIS
     Dosage: APPLYING TO THE LINE ABOVE THE TOP AND BOTTOM LIP, TO THE NOSE, AND EYEBROW
     Route: 061
     Dates: start: 20201117, end: 20201224

REACTIONS (5)
  - Lip scab [Recovering/Resolving]
  - Lip ulceration [Recovering/Resolving]
  - Ulcer haemorrhage [Recovering/Resolving]
  - Lip swelling [Recovering/Resolving]
  - Lip erythema [Recovering/Resolving]

NARRATIVE: CASE EVENT DATE: 20201221
